FAERS Safety Report 4892220-7 (Version None)
Quarter: 2006Q1

REPORT INFORMATION
  Report Type: 
  Country: None (occurrence: None)
  Receive Date: 20060124
  Receipt Date: 20060119
  Transmission Date: 20060701
  Serious: Yes (Other)
  Sender: FDA-Public Use
  Company Number: 1979

PATIENT
  Sex: Female

DRUGS (1)
  1. AMNESTEEM [Suspect]
     Dosage: 40  MG PER DAY PO
     Route: 048
     Dates: end: 20060113

REACTIONS (1)
  - PREGNANCY TEST POSITIVE [None]
